FAERS Safety Report 25998574 (Version 3)
Quarter: 2025Q4

REPORT INFORMATION
  Report Type: Report from Study
  Country: US (occurrence: US)
  Receive Date: 20251105
  Receipt Date: 20251216
  Transmission Date: 20260117
  Serious: Yes (Other)
  Sender: INSMED
  Company Number: US-INSMED, INC.-2025-00557-US

PATIENT
  Sex: Female

DRUGS (4)
  1. ARIKAYCE [Suspect]
     Active Substance: AMIKACIN
     Indication: Mycobacterial infection
     Dosage: UNK, BIW
     Route: 055
     Dates: start: 202411
  2. ARIKAYCE [Suspect]
     Active Substance: AMIKACIN
     Dosage: 590 MILLIGRAM, QD
     Route: 055
  3. ARIKAYCE [Suspect]
     Active Substance: AMIKACIN
     Dosage: 590 MILLIGRAM, UNK (THREE TO FOUR TIMES PER WEEK)
     Route: 055
  4. ARIKAYCE [Suspect]
     Active Substance: AMIKACIN
     Dosage: 590 MILLIGRAM, TIW
     Route: 055

REACTIONS (4)
  - Condition aggravated [Unknown]
  - Adverse drug reaction [Unknown]
  - Drug ineffective [Unknown]
  - Off label use [Unknown]
